FAERS Safety Report 21283479 (Version 1)
Quarter: 2022Q3

REPORT INFORMATION
  Report Type: Spontaneous
  Country: US (occurrence: US)
  Receive Date: 20220901
  Receipt Date: 20220901
  Transmission Date: 20221027
  Serious: Yes (Hospitalization)
  Sender: FDA-Public Use
  Company Number: US-AMERICAN REGENT INC-2022002483

PATIENT
  Age: 32 Year
  Sex: Female

DRUGS (16)
  1. METHYLERGONOVINE MALEATE [Suspect]
     Active Substance: METHYLERGONOVINE MALEATE
     Indication: Uterine atony
     Dosage: 200 MICROGRAM
     Route: 030
  2. OXYTOCIN [Suspect]
     Active Substance: OXYTOCIN
     Indication: Labour induction
     Dosage: STARTED AT 0.24 U/H
     Route: 042
  3. OXYTOCIN [Suspect]
     Active Substance: OXYTOCIN
     Indication: Uterine atony
     Dosage: RANGING FROM 0.04 U/H TO 1.2 U/H
     Route: 042
  4. OXYTOCIN [Suspect]
     Active Substance: OXYTOCIN
     Dosage: 20 IU INTERNATIONAL UNIT(S), SINGLE
     Route: 042
  5. LACTATED RINGERS SOLUTION [Suspect]
     Active Substance: CALCIUM CHLORIDE\POTASSIUM CHLORIDE\SODIUM CHLORIDE\SODIUM LACTATE
     Indication: Foetal heart rate deceleration abnormality
     Dosage: 500 MILLILITER, TID
  6. MISOPROSTOL [Concomitant]
     Active Substance: MISOPROSTOL
     Indication: Labour induction
     Dosage: 25 MICROGRAM, SINGLE
     Route: 060
  7. MAGNESIUM SULFATE [Concomitant]
     Active Substance: MAGNESIUM SULFATE
     Indication: Blood pressure increased
     Dosage: 6 GRAM, SINGLE
  8. MAGNESIUM SULFATE [Concomitant]
     Active Substance: MAGNESIUM SULFATE
     Dosage: RANGING FROM 1.5 TO 2.0 G/H
  9. LABETALOL [Concomitant]
     Active Substance: LABETALOL\LABETALOL HYDROCHLORIDE
     Indication: Hypertension
     Dosage: 10 MILLIGRAM, SINGLE
     Route: 042
  10. BUPIVACAINE\FENTANYL [Concomitant]
     Active Substance: BUPIVACAINE\FENTANYL
     Indication: Labour pain
     Dosage: 0.125% BUPIVACAINE WITH FENTANYL 2 MCG/ML; 6 ML/H
     Route: 008
  11. FUROSEMIDE [Concomitant]
     Active Substance: FUROSEMIDE
     Indication: Acute pulmonary oedema
     Dosage: 10 MILLIGRAM, SINGLE
     Route: 042
  12. FUROSEMIDE [Concomitant]
     Active Substance: FUROSEMIDE
     Indication: Hypervolaemia
     Dosage: 20 MILLIGRAM, SINGLE
     Route: 042
  13. FUROSEMIDE [Concomitant]
     Active Substance: FUROSEMIDE
     Dosage: 20 MILLIGRAM, SINGLE
     Route: 042
  14. LIDOCAINE HYDROCHLORIDE [Concomitant]
     Active Substance: LIDOCAINE HYDROCHLORIDE
     Indication: Labour pain
     Dosage: LIDOCAINE 2% IN 1ML 8.4% SODIUM BICARBONATE BOLUSED INCREMENTALLLY, FINAL VOLUME 20 ML
     Route: 008
  15. SODIUM BICARBONATE [Concomitant]
     Active Substance: SODIUM BICARBONATE
     Indication: Labour pain
     Dosage: LIDOCAINE 2% IN 1 ML 8.4% SODIUM BICARBONATE BLOUSED INCREMENTALLY, FINAL VOLUME 20 ML
     Route: 008
  16. CARBOPROST TROMETHAMINE [Concomitant]
     Active Substance: CARBOPROST TROMETHAMINE
     Indication: Uterine atony
     Dosage: 250 MICROGRAM, SINGLE
     Route: 030

REACTIONS (3)
  - Acute respiratory failure [Recovering/Resolving]
  - Acute pulmonary oedema [Recovering/Resolving]
  - Condition aggravated [Recovering/Resolving]
